FAERS Safety Report 6150796-6 (Version None)
Quarter: 2009Q2

REPORT INFORMATION
  Report Type: 
  Country: None (occurrence: None)
  Receive Date: 20090409
  Receipt Date: 20090407
  Transmission Date: 20091009
  Serious: Yes (Hospitalization)
  Sender: FDA-Public Use
  Company Number: US-GILEAD-2009-0021288

PATIENT
  Sex: Female
  Weight: 82.628 kg

DRUGS (14)
  1. LETAIRIS [Suspect]
     Indication: PULMONARY ARTERIAL HYPERTENSION
     Route: 048
     Dates: start: 20081010
  2. ALBUTEROL [Concomitant]
  3. OXYGEN [Concomitant]
  4. LASIX [Concomitant]
  5. AVANDIA [Concomitant]
  6. METFORMIN HCL [Concomitant]
  7. GLYBURIDE [Concomitant]
  8. BYETTA [Concomitant]
  9. LIPITOR [Concomitant]
  10. SYNTHROID [Concomitant]
  11. LORTAB [Concomitant]
  12. PREVACID [Concomitant]
  13. ALTACE [Concomitant]
  14. CELEBREX [Concomitant]

REACTIONS (1)
  - PNEUMONIA [None]
